FAERS Safety Report 4344663-8 (Version None)
Quarter: 2004Q2

REPORT INFORMATION
  Report Type: 
  Country: None (occurrence: None)
  Receive Date: 20040421
  Receipt Date: 20040406
  Transmission Date: 20050107
  Serious: Yes (Life-Threatening)
  Sender: FDA-Public Use
  Company Number: 20040400272

PATIENT
  Age: 50 Year
  Sex: Male

DRUGS (2)
  1. PANCURONIUM BROMIDE [Suspect]
     Dosage: OTHER ONCE
     Route: 050
     Dates: start: 20040101, end: 20040101
  2. PANCURONIUM BROMIDE [Suspect]
     Dates: start: 20040101, end: 20040101

REACTIONS (6)
  - ACCIDENT [None]
  - CARDIAC ARREST [None]
  - DYSPNOEA [None]
  - DYSPNOEA EXERTIONAL [None]
  - MEDICATION ERROR [None]
  - RESPIRATORY ARREST [None]
